FAERS Safety Report 13763747 (Version 2)
Quarter: 2017Q3

REPORT INFORMATION
  Report Type: Spontaneous
  Country: NL (occurrence: NL)
  Receive Date: 20170718
  Receipt Date: 20170720
  Transmission Date: 20171127
  Serious: Yes (Life-Threatening, Hospitalization, Other)
  Sender: FDA-Public Use
  Company Number: PHHY2017NL099652

PATIENT
  Age: 32 Year
  Sex: Male
  Weight: 110 kg

DRUGS (1)
  1. OLANZAPINE. [Suspect]
     Active Substance: OLANZAPINE
     Indication: PSYCHOTIC DISORDER
     Dosage: 10 MG
     Route: 048
     Dates: start: 2016, end: 20170327

REACTIONS (8)
  - Hyperthermia malignant [Unknown]
  - Seizure [Unknown]
  - Thrombocytopenia [Unknown]
  - Renal failure [Unknown]
  - Diabetes mellitus [Not Recovered/Not Resolved]
  - Rhabdomyolysis [Recovered/Resolved]
  - Hyperglycaemic hyperosmolar nonketotic syndrome [Unknown]
  - Cardiac arrest [Unknown]

NARRATIVE: CASE EVENT DATE: 20170327
